FAERS Safety Report 8190244-8 (Version None)
Quarter: 2012Q1

REPORT INFORMATION
  Report Type: 
  Country: None (occurrence: None)
  Receive Date: 20120307
  Receipt Date: 20120228
  Transmission Date: 20120608
  Serious: Yes (Other)
  Sender: FDA-Public Use
  Company Number: CA-JNJFOC-20120214250

PATIENT
  Sex: Female
  Weight: 50 kg

DRUGS (5)
  1. BIRTH CONTROL PILL [Concomitant]
     Route: 065
  2. RANITIDINE [Concomitant]
     Route: 065
  3. REMICADE [Suspect]
     Indication: COLITIS ULCERATIVE
     Route: 042
     Dates: start: 20091001
  4. MESALAMINE [Concomitant]
     Route: 065
  5. CORTIFOAM [Concomitant]
     Route: 065

REACTIONS (1)
  - GINGIVAL GRAFT [None]
